FAERS Safety Report 9326177 (Version 1)
Quarter: 2013Q2

REPORT INFORMATION
  Report Type: Spontaneous
  Country: ES (occurrence: ES)
  Receive Date: 20130604
  Receipt Date: 20130604
  Transmission Date: 20140414
  Serious: Yes (Life-Threatening, Hospitalization)
  Sender: FDA-Public Use
  Company Number: ES-SANOFI-AVENTIS-2013SA054620

PATIENT
  Age: 42 Year
  Sex: Female

DRUGS (11)
  1. CLEXANE [Suspect]
     Indication: THROMBOSIS PROPHYLAXIS
     Route: 058
     Dates: start: 20120929, end: 20121004
  2. CLEXANE [Interacting]
     Indication: THROMBOSIS PROPHYLAXIS
     Dosage: DEL 29/09 AL 4/10 70 MG DIA Y DEL 5 AL 10/10 40MG
     Route: 058
     Dates: start: 20121005, end: 20121010
  3. CLOPIDOGREL [Interacting]
     Indication: PERIPHERAL ISCHAEMIA
     Dosage: 75MG
     Route: 048
     Dates: start: 201201
  4. TAZOCEL [Concomitant]
     Indication: SKIN INFECTION
     Dosage: AMP/6H, POWDER FOR SOLUTION FOR INFUSION, 1 VIAL
     Route: 042
     Dates: start: 20120928, end: 20120929
  5. TAZOCEL [Concomitant]
     Indication: SKIN INFECTION
     Dosage: AMP/6H, POWDER FOR SOLUTION FOR INFUSION, 1 VIAL
     Route: 042
     Dates: start: 20120928, end: 20120929
  6. TAZOCEL [Concomitant]
     Indication: SKIN INFECTION
     Dosage: 1AMP/8H
     Route: 042
     Dates: start: 20121004, end: 20121011
  7. TAZOCEL [Concomitant]
     Indication: SKIN INFECTION
     Dosage: 1AMP/8H
     Route: 042
     Dates: start: 20121004, end: 20121011
  8. FUROSEMIDA [Concomitant]
     Indication: CARDIAC FAILURE
     Dosage: 20MG/12H
     Route: 042
     Dates: start: 20120928
  9. GABAPENTIN [Concomitant]
     Indication: NEURALGIA
     Dosage: 300MG/12H
     Route: 048
     Dates: start: 20120928
  10. MEROPENEM [Concomitant]
     Indication: SKIN INFECTION
     Dosage: 1GR/8H
     Route: 042
     Dates: start: 20120928
  11. PANTOPRAZOLE [Concomitant]
     Indication: PROPHYLAXIS AGAINST GASTROINTESTINAL ULCER
     Dosage: 40MG
     Route: 048
     Dates: start: 20120928

REACTIONS (7)
  - Anaemia [Recovered/Resolved]
  - Angina pectoris [Recovered/Resolved]
  - Cardiac failure acute [Not Recovered/Not Resolved]
  - Renal failure [Not Recovered/Not Resolved]
  - Hypovolaemic shock [Recovered/Resolved with Sequelae]
  - Upper gastrointestinal haemorrhage [Recovered/Resolved]
  - Drug interaction [Recovered/Resolved]
